FAERS Safety Report 14351036 (Version 2)
Quarter: 2018Q1

REPORT INFORMATION
  Report Type: Spontaneous
  Country: US (occurrence: US)
  Receive Date: 20180104
  Receipt Date: 20180105
  Transmission Date: 20180509
  Serious: No
  Sender: FDA-Public Use
  Company Number: US-PFIZER INC-2018001183

PATIENT
  Age: 61 Year
  Sex: Male

DRUGS (1)
  1. CELEBREX [Suspect]
     Active Substance: CELECOXIB
     Dosage: 400 MG, UNK

REACTIONS (10)
  - Feeling hot [Unknown]
  - Vision blurred [Unknown]
  - Feeling abnormal [Unknown]
  - Chest discomfort [Unknown]
  - Visual impairment [Unknown]
  - Chest pain [Unknown]
  - Extra dose administered [Unknown]
  - Back pain [Unknown]
  - Palpitations [Unknown]
  - Dizziness [Unknown]
